FAERS Safety Report 4741482-5 (Version None)
Quarter: 2005Q3

REPORT INFORMATION
  Report Type: 
  Country: None (occurrence: None)
  Receive Date: 20050810
  Receipt Date: 20050714
  Transmission Date: 20060218
  Serious: Yes (Hospitalization)
  Sender: FDA-Public Use
  Company Number: US-AMGEN-KDL142743

PATIENT
  Sex: Male

DRUGS (13)
  1. ENBREL [Suspect]
     Indication: ANKYLOSING SPONDYLITIS
     Route: 058
     Dates: start: 20050419, end: 20050610
  2. NIFEDIPINE [Concomitant]
     Route: 048
  3. ADVAIR DISKUS 100/50 [Concomitant]
     Route: 055
  4. AMBIEN [Concomitant]
     Route: 048
  5. FOLIC ACID [Concomitant]
     Route: 048
  6. DARVOCET-N 100 [Concomitant]
  7. LASIX [Concomitant]
     Route: 048
  8. INH [Concomitant]
  9. POTASSIUM CHLORIDE [Concomitant]
  10. VITAMIN B-12 [Concomitant]
     Route: 048
  11. ATROVENT [Concomitant]
     Route: 055
  12. XOPENEX [Concomitant]
     Route: 055
  13. PREDNISONE [Concomitant]
     Route: 048

REACTIONS (9)
  - ADVERSE DRUG REACTION [None]
  - DEHYDRATION [None]
  - DIARRHOEA [None]
  - DIVERTICULAR PERFORATION [None]
  - DIVERTICULITIS [None]
  - DRUG WITHDRAWAL SYNDROME [None]
  - HYPOTENSION [None]
  - NAUSEA [None]
  - RENAL FAILURE ACUTE [None]
